FAERS Safety Report 25980894 (Version 1)
Quarter: 2025Q4

REPORT INFORMATION
  Report Type: Spontaneous
  Country: US (occurrence: None)
  Receive Date: 20251030
  Receipt Date: 20251030
  Transmission Date: 20260119
  Serious: Yes (Hospitalization)
  Sender: FDA-CTU
  Company Number: None

PATIENT
  Sex: Male

DRUGS (1)
  1. TOBRAMYCIN [Suspect]
     Active Substance: TOBRAMYCIN
     Indication: Acute respiratory failure
     Dosage: 300 MG TWICE A DAY RESPIRATHORY (INHALATION)
     Route: 055
     Dates: start: 20241028

REACTIONS (3)
  - Pneumonia [None]
  - Blood potassium decreased [None]
  - Gastrooesophageal reflux disease [None]
